FAERS Safety Report 9778639 (Version 1)
Quarter: 2013Q4

REPORT INFORMATION
  Report Type: Spontaneous
  Country: US (occurrence: US)
  Receive Date: 20131223
  Receipt Date: 20131223
  Transmission Date: 20140711
  Serious: Yes (Hospitalization)
  Sender: FDA-Public Use
  Company Number: US-DRREDDYS-USA/USA/13/0036555

PATIENT
  Age: 53 Year
  Sex: Male

DRUGS (5)
  1. IBUPROFEN [Suspect]
     Indication: PAIN
     Route: 065
  2. EXCEDRIN [Suspect]
     Indication: PAIN
     Route: 065
  3. OXYCODONE [Suspect]
     Indication: PAIN
     Route: 065
  4. ALCOHOL [Suspect]
     Indication: PAIN
     Route: 065
  5. CANNABIS [Suspect]
     Indication: PAIN
     Route: 065

REACTIONS (3)
  - Extradural haematoma [Unknown]
  - Paraplegia [Unknown]
  - Back pain [Unknown]
